FAERS Safety Report 5183896-8 (Version None)
Quarter: 2006Q4

REPORT INFORMATION
  Report Type: 
  Country: None (occurrence: None)
  Receive Date: 20061220
  Receipt Date: 20060224
  Transmission Date: 20070319
  Serious: No
  Sender: FDA-Public Use
  Company Number: US-GLAXOSMITHKLINE-A0595062A

PATIENT
  Age: 67 Year
  Sex: Female

DRUGS (1)
  1. AMERICAN FARE NTS, 14MG STEP 2 [Suspect]
     Dates: start: 20060216, end: 20060218

REACTIONS (2)
  - DRUG INEFFECTIVE [None]
  - NICOTINE DEPENDENCE [None]
